FAERS Safety Report 4853000-1 (Version None)
Quarter: 2005Q4

REPORT INFORMATION
  Report Type: 
  Country: None (occurrence: None)
  Receive Date: 20051212
  Receipt Date: 20051118
  Transmission Date: 20060501
  Serious: Yes (Other)
  Sender: FDA-Public Use
  Company Number: US200511002239

PATIENT
  Age: 65 Year
  Sex: Female

DRUGS (1)
  1. CYMBALTA [Suspect]
     Dosage: 60 MG, CAPSULE, ORAL
     Route: 048
     Dates: start: 20050801, end: 20051101

REACTIONS (2)
  - CONDITION AGGRAVATED [None]
  - LIVER FUNCTION TEST ABNORMAL [None]
